FAERS Safety Report 17611570 (Version 1)
Quarter: 2020Q2

REPORT INFORMATION
  Report Type: Report from Study
  Country: IT (occurrence: IT)
  Receive Date: 20200401
  Receipt Date: 20200401
  Transmission Date: 20200713
  Serious: Yes (Other)
  Sender: FDA-Public Use
  Company Number: IT-JNJFOC-20200339014

PATIENT
  Age: 60 Year
  Sex: Male

DRUGS (5)
  1. XANAX [Concomitant]
     Active Substance: ALPRAZOLAM
     Indication: DEPRESSION
     Dosage: 1 DOSAGE FORM
     Route: 048
  2. TACHIDOL [Interacting]
     Active Substance: ACETAMINOPHEN\CODEINE PHOSPHATE
     Indication: HAEMORRHOIDS
     Dosage: 1 DOSAGE FORM, ONCE
     Route: 048
     Dates: start: 20200216, end: 20200216
  3. TRAMADOL HYDROCHLORIDE. [Suspect]
     Active Substance: TRAMADOL HYDROCHLORIDE
     Indication: HAEMORRHOIDS
     Dosage: 30 DROP, ONCE
     Route: 048
     Dates: start: 20200216, end: 20200216
  4. PREGABALIN. [Interacting]
     Active Substance: PREGABALIN
     Indication: HAEMORRHOIDS
     Dosage: 125 MILLIGRAM, ONCE
     Route: 048
     Dates: start: 20200216, end: 20200216
  5. FLUOXETINE [Concomitant]
     Active Substance: FLUOXETINE HYDROCHLORIDE
     Indication: DEPRESSION
     Dosage: 20 MILLIGRAM
     Route: 048

REACTIONS (4)
  - Product administration error [Recovered/Resolved]
  - Hypokinesia [Recovered/Resolved]
  - Bradyphrenia [Recovered/Resolved]
  - Drug interaction [Recovered/Resolved]

NARRATIVE: CASE EVENT DATE: 20200217
